FAERS Safety Report 5016749-6 (Version None)
Quarter: 2006Q2

REPORT INFORMATION
  Report Type: 
  Country: None (occurrence: None)
  Receive Date: 20060526
  Receipt Date: 20060427
  Transmission Date: 20061013
  Serious: Yes (Death)
  Sender: FDA-Public Use
  Company Number: 6022377

PATIENT
  Sex: Female

DRUGS (2)
  1. FLUOXETINE [Suspect]
     Indication: DRUG EXPOSURE DURING PREGNANCY
  2. TRANDATE [Concomitant]

REACTIONS (8)
  - CARDIOPULMONARY FAILURE [None]
  - CYANOSIS NEONATAL [None]
  - DRUG EXPOSURE DURING PREGNANCY [None]
  - NEONATAL RESPIRATORY ACIDOSIS [None]
  - PULMONARY HYPERTENSION [None]
  - PULMONARY OEDEMA NEONATAL [None]
  - RESPIRATORY DISORDER NEONATAL [None]
  - RESPIRATORY TRACT HAEMORRHAGE NEONATAL [None]
